FAERS Safety Report 21620613 (Version 1)
Quarter: 2022Q4

REPORT INFORMATION
  Report Type: Report from Study
  Country: US (occurrence: US)
  Receive Date: 20221121
  Receipt Date: 20221121
  Transmission Date: 20230113
  Serious: Yes (Hospitalization, Other)
  Sender: FDA-Public Use
  Company Number: US-TAKEDA-2022TUS046991

PATIENT
  Sex: Male

DRUGS (12)
  1. TEDUGLUTIDE [Suspect]
     Active Substance: TEDUGLUTIDE
     Indication: Short-bowel syndrome
     Dosage: 3.22 MILLIGRAM, QD
     Route: 058
     Dates: start: 202206
  2. TEDUGLUTIDE [Suspect]
     Active Substance: TEDUGLUTIDE
     Indication: Short-bowel syndrome
     Dosage: 3.22 MILLIGRAM, QD
     Route: 058
     Dates: start: 202206
  3. TEDUGLUTIDE [Suspect]
     Active Substance: TEDUGLUTIDE
     Indication: Short-bowel syndrome
     Dosage: 3.22 MILLIGRAM, QD
     Route: 058
     Dates: start: 202206
  4. TEDUGLUTIDE [Suspect]
     Active Substance: TEDUGLUTIDE
     Indication: Short-bowel syndrome
     Dosage: 3.22 MILLIGRAM, QD
     Route: 058
     Dates: start: 202206
  5. TEDUGLUTIDE [Suspect]
     Active Substance: TEDUGLUTIDE
     Dosage: 3.22 MILLIGRAM, QD
     Route: 058
     Dates: start: 20220609
  6. TEDUGLUTIDE [Suspect]
     Active Substance: TEDUGLUTIDE
     Dosage: 3.22 MILLIGRAM, QD
     Route: 058
     Dates: start: 20220609
  7. TEDUGLUTIDE [Suspect]
     Active Substance: TEDUGLUTIDE
     Dosage: 3.22 MILLIGRAM, QD
     Route: 058
     Dates: start: 20220609
  8. TEDUGLUTIDE [Suspect]
     Active Substance: TEDUGLUTIDE
     Dosage: 3.22 MILLIGRAM, QD
     Route: 058
     Dates: start: 20220609
  9. TEDUGLUTIDE [Suspect]
     Active Substance: TEDUGLUTIDE
     Dosage: 3.22 MILLIGRAM, QD
     Route: 058
     Dates: start: 20220609
  10. TEDUGLUTIDE [Suspect]
     Active Substance: TEDUGLUTIDE
     Dosage: 3.22 MILLIGRAM, QD
     Route: 058
     Dates: start: 20220609
  11. TEDUGLUTIDE [Suspect]
     Active Substance: TEDUGLUTIDE
     Dosage: 3.22 MILLIGRAM, QD
     Route: 058
     Dates: start: 20220609
  12. TEDUGLUTIDE [Suspect]
     Active Substance: TEDUGLUTIDE
     Dosage: 3.22 MILLIGRAM, QD
     Route: 058
     Dates: start: 20220609

REACTIONS (9)
  - Blood magnesium decreased [Unknown]
  - Intestinal obstruction [Unknown]
  - Palpitations [Unknown]
  - Blood pressure increased [Unknown]
  - Stoma site oedema [Unknown]
  - Gastrointestinal stoma complication [Unknown]
  - Weight increased [Unknown]
  - Product dose omission issue [Unknown]
  - Product quality issue [Unknown]
